FAERS Safety Report 16221798 (Version 1)
Quarter: 2019Q2

REPORT INFORMATION
  Report Type: Report from Study
  Country: IT (occurrence: IT)
  Receive Date: 20190422
  Receipt Date: 20190422
  Transmission Date: 20190711
  Serious: Yes (Hospitalization)
  Sender: FDA-Public Use
  Company Number: IT-TEVA-2019-IT-1040095

PATIENT
  Age: 43 Year
  Sex: Female

DRUGS (2)
  1. XANAX [Suspect]
     Active Substance: ALPRAZOLAM
     Dosage: 40 DOSAGE FORMS DAILY;
     Route: 048
     Dates: start: 20180702, end: 20180702
  2. LIDOCAINE. [Suspect]
     Active Substance: LIDOCAINE
     Route: 048
     Dates: start: 20180702, end: 20180702

REACTIONS (5)
  - Intentional product misuse [Unknown]
  - Respiratory alkalosis [Unknown]
  - Drug abuse [Unknown]
  - Metabolic acidosis [Unknown]
  - Sopor [Unknown]

NARRATIVE: CASE EVENT DATE: 20180702
